FAERS Safety Report 5427635-1 (Version None)
Quarter: 2007Q3

REPORT INFORMATION
  Report Type: 
  Country: None (occurrence: None)
  Receive Date: 20070823
  Receipt Date: 20070809
  Transmission Date: 20080115
  Serious: Yes (Life-Threatening)
  Sender: FDA-Public Use
  Company Number: 805#1#2007-00051

PATIENT
  Age: 75 Year
  Sex: Male

DRUGS (1)
  1. ALPROSTADIL [Suspect]
     Indication: ARTERIOSCLEROSIS OBLITERANS
     Dosage: 120 MCG (60 MCG 2 IN 1 DAY (S)) INTRAVENOUS DRIP
     Route: 041
     Dates: start: 20070319, end: 20070328

REACTIONS (1)
  - CARDIAC FAILURE ACUTE [None]
